FAERS Safety Report 11877983 (Version 4)
Quarter: 2017Q2

REPORT INFORMATION
  Report Type: Report from Study
  Country: US (occurrence: US)
  Receive Date: 20151230
  Receipt Date: 20170630
  Transmission Date: 20170829
  Serious: Yes (Life-Threatening, Other)
  Sender: FDA-Public Use
  Company Number: PHEH2015US027265

PATIENT
  Age: 66 Year
  Sex: Male
  Weight: 106.6 kg

DRUGS (2)
  1. MEKINIST [Suspect]
     Active Substance: TRAMETINIB DIMETHYL SULFOXIDE
     Indication: MALIGNANT MELANOMA STAGE IV
     Dosage: 2 MG, QD
     Route: 048
     Dates: start: 20150803, end: 20151103
  2. TAFINLAR [Suspect]
     Active Substance: DABRAFENIB MESYLATE
     Indication: MALIGNANT MELANOMA STAGE IV
     Route: 065

REACTIONS (6)
  - Cough [Unknown]
  - Dyspnoea [Unknown]
  - Respiratory failure [Unknown]
  - Carbon monoxide diffusing capacity decreased [Unknown]
  - Peripheral swelling [Unknown]
  - Pulmonary function test decreased [Unknown]

NARRATIVE: CASE EVENT DATE: 20151028
